FAERS Safety Report 19050928 (Version 2)
Quarter: 2021Q2

REPORT INFORMATION
  Report Type: Spontaneous
  Country: DE (occurrence: DE)
  Receive Date: 20210324
  Receipt Date: 20210511
  Transmission Date: 20210717
  Serious: No
  Sender: FDA-Public Use
  Company Number: DE-ROCHE-2790643

PATIENT
  Sex: Female

DRUGS (1)
  1. PHESGO (GERMANY) [Suspect]
     Active Substance: PERTUZUMAB\TRASTUZUMAB
     Indication: BREAST CANCER METASTATIC
     Dosage: 600MG/600M
     Route: 065
     Dates: start: 20210311

REACTIONS (2)
  - Cardiovascular disorder [Recovering/Resolving]
  - Dehydration [Recovering/Resolving]

NARRATIVE: CASE EVENT DATE: 20210312
